FAERS Safety Report 8797117 (Version 1)
Quarter: 2012Q4

REPORT INFORMATION
  Report Type: 
  Country: US (occurrence: US)
  Receive Date: 20120920
  Receipt Date: 20120920
  Transmission Date: 20130627
  Serious: Yes (Hospitalization)
  Sender: FDA-Public Use
  Company Number: US-PFIZER INC-2012232132

PATIENT
  Age: 79 Year
  Sex: Male
  Weight: 88.44 kg

DRUGS (5)
  1. TIKOSYN [Suspect]
     Indication: ATRIAL FIBRILLATION
     Dosage: 500 ug, 2x/day
     Route: 048
     Dates: start: 201208, end: 201209
  2. WARFARIN [Concomitant]
     Indication: ANTICOAGULANT THERAPY
     Dosage: UNK
  3. TERAZOSIN [Concomitant]
     Indication: PROSTATOMEGALY
     Dosage: UNK
  4. FINASTERIDE [Concomitant]
     Indication: PROSTATOMEGALY
     Dosage: UNK
  5. PRAVASTATIN [Concomitant]
     Indication: BLOOD CHOLESTEROL INCREASED
     Dosage: UNK

REACTIONS (2)
  - Atrial fibrillation [Recovering/Resolving]
  - Drug effect incomplete [Unknown]
